FAERS Safety Report 6118521-2 (Version None)
Quarter: 2009Q1

REPORT INFORMATION
  Report Type: 
  Country: None (occurrence: None)
  Receive Date: 20090314
  Receipt Date: 20090220
  Transmission Date: 20090719
  Serious: Yes (Other)
  Sender: FDA-Public Use
  Company Number: US-ABBOTT-09P-163-0558607-00

PATIENT
  Sex: Female
  Weight: 81.72 kg

DRUGS (3)
  1. HUMIRA [Suspect]
     Indication: CROHN'S DISEASE
     Dates: start: 20081129, end: 20090203
  2. HUMIRA [Suspect]
  3. PERCOCET [Concomitant]
     Indication: PAIN
     Dosage: 1 TO 2 TABS EVERY 4-6 HR PRN
     Dates: start: 20090205

REACTIONS (1)
  - CROHN'S DISEASE [None]
